FAERS Safety Report 8185412-5 (Version None)
Quarter: 2012Q1

REPORT INFORMATION
  Report Type: 
  Country: None (occurrence: None)
  Receive Date: 20120305
  Receipt Date: 20120301
  Transmission Date: 20120608
  Serious: Yes (Other)
  Sender: FDA-Public Use
  Company Number: PHHY2011CA86995

PATIENT
  Sex: Male

DRUGS (2)
  1. SANDOSTATIN LAR [Suspect]
     Indication: PANCREATIC NEUROENDOCRINE TUMOUR METASTATIC
     Dosage: 30 MG, QMO
     Route: 030
     Dates: start: 20110831
  2. AFINITOR [Suspect]
     Indication: PANCREATIC NEUROENDOCRINE TUMOUR
     Dosage: 10 MG DAILY
     Route: 048
     Dates: start: 20110712, end: 20111010

REACTIONS (10)
  - BLOOD CREATINE PHOSPHOKINASE INCREASED [None]
  - CONTUSION [None]
  - ROAD TRAFFIC ACCIDENT [None]
  - LIGAMENT SPRAIN [None]
  - DIARRHOEA [None]
  - INJECTION SITE PAIN [None]
  - POLYMYOSITIS [None]
  - FEELING ABNORMAL [None]
  - FALL [None]
  - MALAISE [None]
